FAERS Safety Report 12355876 (Version 1)
Quarter: 2016Q2

REPORT INFORMATION
  Report Type: Spontaneous
  Country: US (occurrence: US)
  Receive Date: 20160511
  Receipt Date: 20160511
  Transmission Date: 20160815
  Serious: Yes (Other)
  Sender: FDA-Public Use
  Company Number: US-DEPOMED, INC.-US-2016DEP009556

PATIENT
  Age: 60 Year
  Sex: Female

DRUGS (4)
  1. DICLOFENAC POTASSIUM. [Suspect]
     Active Substance: DICLOFENAC POTASSIUM
     Indication: OSTEOARTHRITIS
     Dosage: 75MG, BID
  2. MISOPROSTOL. [Concomitant]
     Active Substance: MISOPROSTOL
     Indication: OSTEOARTHRITIS
     Dosage: 200 ?G, BID
  3. ANTACIDS [Concomitant]
     Active Substance: UNSPECIFIED INGREDIENT
     Indication: GASTROOESOPHAGEAL REFLUX DISEASE
     Dosage: UNK
  4. LEVOTHYROXINE. [Concomitant]
     Active Substance: LEVOTHYROXINE
     Indication: HYPOTHYROIDISM
     Dosage: UNK

REACTIONS (7)
  - Hepatocellular injury [Recovered/Resolved]
  - Abdominal pain [Recovered/Resolved]
  - Rash [Unknown]
  - Pruritus [Recovered/Resolved]
  - Fatigue [Unknown]
  - Oedema peripheral [Unknown]
  - Jaundice [Recovered/Resolved]
